FAERS Safety Report 12802569 (Version 1)
Quarter: 2016Q4

REPORT INFORMATION
  Report Type: Spontaneous
  Country: US (occurrence: US)
  Receive Date: 20161003
  Receipt Date: 20161003
  Transmission Date: 20170207
  Serious: No
  Sender: FDA-Public Use
  Company Number: US-MISSION PHARMACAL COMPANY-1057909

PATIENT
  Age: 58 Year
  Sex: Male

DRUGS (1)
  1. THIOLA [Suspect]
     Active Substance: TIOPRONIN
     Indication: NEPHROLITHIASIS
     Route: 065
     Dates: start: 20151211, end: 20160908

REACTIONS (4)
  - Nephritis [Recovered/Resolved]
  - Hot flush [Recovered/Resolved]
  - Pain in extremity [Recovered/Resolved]
  - Mouth ulceration [Recovered/Resolved]
